FAERS Safety Report 17088040 (Version 1)
Quarter: 2019Q4

REPORT INFORMATION
  Report Type: Spontaneous
  Country: US (occurrence: US)
  Receive Date: 20191031
  Receipt Date: 20191031
  Transmission Date: 20200122
  Serious: Yes (Hospitalization)
  Sender: FDA-Public Use
  Company Number: None

PATIENT
  Age: 60 Year
  Sex: Female
  Weight: 137.89 kg

DRUGS (1)
  1. WARFARIN [Suspect]
     Active Substance: WARFARIN
     Indication: DEEP VEIN THROMBOSIS
     Route: 048
     Dates: start: 20090101, end: 20190925

REACTIONS (5)
  - Gastric haemorrhage [None]
  - Melaena [None]
  - Dizziness [None]
  - Asthenia [None]
  - International normalised ratio abnormal [None]

NARRATIVE: CASE EVENT DATE: 20190925
